FAERS Safety Report 8790429 (Version 1)
Quarter: 2012Q4

REPORT INFORMATION
  Report Type: Spontaneous
  Country: US (occurrence: None)
  Receive Date: 20120911
  Receipt Date: 20120911
  Transmission Date: 20130627
  Serious: No
  Sender: FDA-Public Use
  Company Number: None

PATIENT
  Age: 79 Year
  Sex: Female
  Weight: 73.94 kg

DRUGS (1)
  1. ATORVASTATIN [Suspect]
     Indication: CHOLESTEROL HIGH
     Dosage: one daily po
     Route: 048
     Dates: start: 20120828, end: 20120907

REACTIONS (2)
  - Amnesia [None]
  - Product substitution issue [None]
